FAERS Safety Report 9893387 (Version 3)
Quarter: 2024Q2

REPORT INFORMATION
  Report Type: Report from Study
  Country: US (occurrence: US)
  Receive Date: 20140213
  Receipt Date: 20240626
  Transmission Date: 20240717
  Serious: No
  Sender: FDA-Public Use
  Company Number: US-JNJFOC-20140110361

PATIENT
  Age: 76 Year
  Sex: Male

DRUGS (3)
  1. STELARA [Suspect]
     Active Substance: USTEKINUMAB
     Indication: Psoriasis
     Route: 058
     Dates: start: 20120112, end: 20130722
  2. STELARA [Suspect]
     Active Substance: USTEKINUMAB
     Route: 058
     Dates: start: 20110922, end: 20110922
  3. STELARA [Suspect]
     Active Substance: USTEKINUMAB
     Route: 058
     Dates: start: 20110811, end: 20110811

REACTIONS (1)
  - Basal cell carcinoma [Unknown]

NARRATIVE: CASE EVENT DATE: 20121105
